FAERS Safety Report 6834566-9 (Version None)
Quarter: 2010Q3

REPORT INFORMATION
  Report Type: 
  Country: None (occurrence: None)
  Receive Date: 20100712
  Receipt Date: 20070418
  Transmission Date: 20110219
  Serious: No
  Sender: FDA-Public Use
  Company Number: US-PFIZER INC-2007031958

PATIENT
  Sex: Female
  Weight: 63.6 kg

DRUGS (8)
  1. CHANTIX [Suspect]
     Indication: SMOKING CESSATION THERAPY
     Dates: start: 20070416
  2. FOSAMAX [Concomitant]
     Indication: BONE DENSITY DECREASED
  3. ALLEGRA [Concomitant]
  4. REGLAN [Concomitant]
  5. FLONASE [Concomitant]
  6. SIMVASTATIN [Concomitant]
     Indication: BLOOD CHOLESTEROL INCREASED
  7. PREMARIN [Concomitant]
  8. CICLOSPORIN [Concomitant]
     Indication: DRY EYE

REACTIONS (3)
  - ABNORMAL DREAMS [None]
  - HEADACHE [None]
  - RASH [None]
